FAERS Safety Report 16389512 (Version 1)
Quarter: 2019Q3

REPORT INFORMATION
  Report Type: Spontaneous
  Country: US (occurrence: US)
  Receive Date: 20190603
  Receipt Date: 20190603
  Transmission Date: 20191004
  Serious: No
  Sender: FDA-Public Use
  Company Number: None

PATIENT
  Age: 58 Year
  Sex: Female
  Weight: 67.5 kg

DRUGS (8)
  1. MAGNESIUM [Concomitant]
     Active Substance: MAGNESIUM
  2. POTASSIUM [Concomitant]
     Active Substance: POTASSIUM
  3. ADVOCARE MNS 3 [Concomitant]
  4. OMEPRAZOLE. [Concomitant]
     Active Substance: OMEPRAZOLE
  5. ODORLESS GARLIC [Concomitant]
  6. RIZATRIPTAN BENZOATE ORALLY DISINTEGRATING TABLETS 10 MG [Suspect]
     Active Substance: RIZATRIPTAN BENZOATE
     Indication: MIGRAINE
     Dosage: ?          QUANTITY:1 TABLET(S);?
     Route: 048
     Dates: start: 20010601, end: 20190602
  7. LISINOPRIL. [Concomitant]
     Active Substance: LISINOPRIL
  8. RED YEAST RICE [Concomitant]
     Active Substance: DIETARY SUPPLEMENT

REACTIONS (7)
  - Dizziness [None]
  - Product substitution issue [None]
  - Loss of personal independence in daily activities [None]
  - Fatigue [None]
  - Speech disorder [None]
  - Limb discomfort [None]
  - Disturbance in attention [None]

NARRATIVE: CASE EVENT DATE: 20190602
